FAERS Safety Report 9247287 (Version 1)
Quarter: 2013Q2

REPORT INFORMATION
  Report Type: Spontaneous
  Country: DE (occurrence: DE)
  Receive Date: 20130423
  Receipt Date: 20130423
  Transmission Date: 20140414
  Serious: Yes (Other)
  Sender: FDA-Public Use
  Company Number: DE-AMGEN-DEUSP2013027749

PATIENT
  Age: 53 Year
  Sex: Female

DRUGS (2)
  1. ENBREL [Suspect]
     Indication: PSORIASIS
     Dosage: 50 MG, 2X/WEEK
     Dates: start: 20101206
  2. DERMATOP [Concomitant]
     Dosage: UNK UNK, AS NECESSARY

REACTIONS (2)
  - Muscle rupture [Not Recovered/Not Resolved]
  - Syncope [Recovered/Resolved]
